FAERS Safety Report 7412639-X (Version None)
Quarter: 2011Q2

REPORT INFORMATION
  Report Type: 
  Country: None (occurrence: None)
  Receive Date: 20110413
  Receipt Date: 20110410
  Transmission Date: 20111010
  Serious: Yes (Other)
  Sender: FDA-Public Use
  Company Number: US-PFIZER INC-2011078701

PATIENT
  Sex: Female
  Weight: 48 kg

DRUGS (1)
  1. PREMARIN [Suspect]
     Indication: VULVOVAGINAL DRYNESS
     Dosage: 0.62 MG, 2X/WEEK
     Route: 067
     Dates: start: 20110401, end: 20110406

REACTIONS (10)
  - EPILEPSY [None]
  - BLISTER [None]
  - PRURITUS [None]
  - INGUINAL HERNIA [None]
  - VULVOVAGINAL PAIN [None]
  - VAGINAL MUCOSAL BLISTERING [None]
  - BURNING SENSATION [None]
  - BACK PAIN [None]
  - PARAESTHESIA [None]
  - PAIN IN EXTREMITY [None]
